FAERS Safety Report 9104131 (Version 1)
Quarter: 2013Q1

REPORT INFORMATION
  Report Type: Spontaneous
  Country: US (occurrence: US)
  Receive Date: 20130219
  Receipt Date: 20130219
  Transmission Date: 20140127
  Serious: No
  Sender: FDA-Public Use
  Company Number: US-ASTRAZENECA-2013SE09600

PATIENT
  Sex: Female

DRUGS (2)
  1. CRESTOR [Suspect]
     Indication: BLOOD CHOLESTEROL ABNORMAL
     Route: 048
  2. CRESTOR [Suspect]
     Indication: BLOOD CHOLESTEROL ABNORMAL
     Route: 048

REACTIONS (5)
  - Hair growth abnormal [Unknown]
  - Nail growth abnormal [Unknown]
  - Rash [Unknown]
  - Pruritus [Unknown]
  - Intentional drug misuse [Unknown]
